FAERS Safety Report 9360850 (Version 1)
Quarter: 2013Q2

REPORT INFORMATION
  Report Type: Spontaneous
  Country: JP (occurrence: None)
  Receive Date: 20130618
  Receipt Date: 20130618
  Transmission Date: 20140414
  Serious: Yes (Death, Other)
  Sender: FDA-Public Use
  Company Number: 2013P1007058

PATIENT
  Age: 74 Year
  Sex: Female

DRUGS (2)
  1. ARGATROBAN [Suspect]
     Indication: ANTICOAGULANT THERAPY
     Route: 042
  2. ARGATROBAN [Suspect]
     Indication: CARDIOPULMONARY BYPASS
     Route: 042

REACTIONS (13)
  - Cardiac arrest [None]
  - Arrhythmia [None]
  - Procedural complication [None]
  - Haemorrhage [None]
  - Coagulation time abnormal [None]
  - Hypotension [None]
  - Hyperkalaemia [None]
  - Urine output decreased [None]
  - Continuous haemodiafiltration [None]
  - Device malfunction [None]
  - Coagulopathy [None]
  - Hepatic failure [None]
  - Disease progression [None]
